FAERS Safety Report 9760279 (Version 1)
Quarter: 2013Q4

REPORT INFORMATION
  Report Type: Spontaneous
  Country: US (occurrence: US)
  Receive Date: 20131216
  Receipt Date: 20131216
  Transmission Date: 20140711
  Serious: Yes (Hospitalization)
  Sender: FDA-Public Use
  Company Number: US-GILEAD-2010-0028802

PATIENT
  Age: 33 Year
  Sex: Female

DRUGS (2)
  1. LETAIRIS [Suspect]
     Indication: PULMONARY ARTERIAL HYPERTENSION
     Route: 048
     Dates: start: 20100326
  2. LETAIRIS [Suspect]
     Route: 048
     Dates: start: 20100304

REACTIONS (2)
  - Fluid retention [Recovered/Resolved]
  - Cardiac failure congestive [Recovering/Resolving]
